FAERS Safety Report 6087605-X (Version None)
Quarter: 2009Q1

REPORT INFORMATION
  Report Type: 
  Country: None (occurrence: None)
  Receive Date: 20090223
  Receipt Date: 20081210
  Transmission Date: 20090719
  Serious: Yes (Hospitalization, Other)
  Sender: FDA-Public Use
  Company Number: US-PFIZER INC-2008152702

PATIENT
  Sex: Male
  Weight: 165.53 kg

DRUGS (10)
  1. ZOLOFT [Suspect]
     Indication: DEPRESSION
     Dosage: 100 MG, 2X/DAY
     Dates: start: 20010101
  2. LIPITOR [Suspect]
     Indication: BLOOD CHOLESTEROL INCREASED
     Dosage: UNK
     Dates: start: 20010101
  3. NOVOLOG [Concomitant]
     Dosage: 20 IU, 3X/DAY
  4. LANTUS [Concomitant]
     Dosage: 110 IU, 1X/DAY
  5. HYDROCHLOROTHIAZIDE [Concomitant]
     Dosage: 25 MG, 1X/DAY
  6. METFORMIN [Concomitant]
     Dosage: 1000 MG, 1X/DAY
  7. LISINOPRIL [Concomitant]
     Dosage: 20 MG, 1X/DAY
  8. METOPROLOL - SLOW RELEASE [Concomitant]
     Dosage: 25 MG, 1X/DAY
  9. GLYBURIDE [Concomitant]
     Dosage: 6 MG, 1X/DAY
  10. PLAVIX [Concomitant]
     Dosage: UNK

REACTIONS (3)
  - BLOOD GLUCOSE INCREASED [None]
  - CEREBROVASCULAR ACCIDENT [None]
  - HYPERTENSION [None]
